FAERS Safety Report 18549924 (Version 1)
Quarter: 2020Q4

REPORT INFORMATION
  Report Type: Spontaneous
  Country: US (occurrence: US)
  Receive Date: 20201126
  Receipt Date: 20201126
  Transmission Date: 20210114
  Serious: Yes (Other)
  Sender: FDA-Public Use
  Company Number: US-PFIZER INC-2020465735

PATIENT
  Age: 60 Year
  Sex: Male
  Weight: 84.37 kg

DRUGS (2)
  1. CHANTIX [Suspect]
     Active Substance: VARENICLINE TARTRATE
     Dosage: 1 DF, 2X/DAY (1 TABLET TWICE A DAY)
     Dates: start: 2018, end: 2018
  2. CHANTIX [Suspect]
     Active Substance: VARENICLINE TARTRATE
     Indication: SMOKING CESSATION THERAPY
     Dosage: 0.5 DF, 2X/DAY (0.5MG 1/2 TABLET IN THE MORNING AND 1/2 TABLET IN THE AFTERNOON)
     Dates: start: 2018, end: 2018

REACTIONS (4)
  - Wrong technique in product usage process [Unknown]
  - Neoplasm malignant [Unknown]
  - Weight decreased [Unknown]
  - Prescription drug used without a prescription [Unknown]

NARRATIVE: CASE EVENT DATE: 2018
